FAERS Safety Report 5200087-2 (Version None)
Quarter: 2007Q1

REPORT INFORMATION
  Report Type: 
  Country: None (occurrence: None)
  Receive Date: 20070105
  Receipt Date: 20061222
  Transmission Date: 20070707
  Serious: Yes (Disabling, Congenital Anomaly, Other)
  Sender: FDA-Public Use
  Company Number: GB-GLAXOSMITHKLINE-B0440115A

PATIENT
  Age: 9 Month
  Sex: Male
  Weight: 3.1 kg

DRUGS (7)
  1. COMBIVIR [Suspect]
     Indication: HIV INFECTION
     Dosage: 1TAB TWICE PER DAY
     Dates: start: 20050830, end: 20051229
  2. RETROVIR [Suspect]
     Indication: ANTIVIRAL PROPHYLAXIS
     Dosage: 4MGK TWICE PER DAY
     Route: 065
     Dates: start: 20051229, end: 20060126
  3. NELFINAVIR [Concomitant]
     Indication: HIV INFECTION
     Dosage: 1.25G TWICE PER DAY
     Dates: start: 20050830, end: 20051229
  4. GAVISCON [Concomitant]
     Route: 065
  5. FERROUS SULFATE TAB [Concomitant]
     Route: 065
  6. FYBOGEL [Concomitant]
     Route: 065
  7. FOLIC ACID [Concomitant]
     Route: 065

REACTIONS (5)
  - CAESAREAN SECTION [None]
  - DEAFNESS UNILATERAL [None]
  - DRUG EXPOSURE DURING PREGNANCY [None]
  - MITOCHONDRIAL TOXICITY [None]
  - NEUROTOXICITY [None]
